FAERS Safety Report 8538454-1 (Version None)
Quarter: 2012Q3

REPORT INFORMATION
  Report Type: 
  Country: None (occurrence: None)
  Receive Date: 20120712
  Receipt Date: 20120628
  Transmission Date: 20120928
  Serious: Yes (Death, Hospitalization, Other)
  Sender: FDA-Public Use
  Company Number: JP-2012-15019

PATIENT
  Age: 94 Year
  Sex: Female

DRUGS (1)
  1. PLETAL [Suspect]
     Dosage: ORAL
     Route: 048
     Dates: start: 20070901

REACTIONS (4)
  - FALL [None]
  - INTERSTITIAL LUNG DISEASE [None]
  - MARASMUS [None]
  - FRACTURE [None]
